FAERS Safety Report 4407224-8 (Version None)
Quarter: 2004Q3

REPORT INFORMATION
  Report Type: 
  Country: None (occurrence: None)
  Receive Date: 20040721
  Receipt Date: 20040422
  Transmission Date: 20050211
  Serious: Yes (Hospitalization, Other)
  Sender: FDA-Public Use
  Company Number: KII-2004-0012124

PATIENT
  Age: 52 Year
  Sex: Male

DRUGS (4)
  1. OXYCONTIN [Suspect]
  2. VALIUM [Suspect]
  3. METHADONE HCL [Suspect]
  4. ALCOHOL (ETHANOL) [Suspect]

REACTIONS (2)
  - ALCOHOLISM [None]
  - POLYSUBSTANCE ABUSE [None]
